FAERS Safety Report 8360847-6 (Version None)
Quarter: 2012Q2

REPORT INFORMATION
  Report Type: 
  Country: None (occurrence: None)
  Receive Date: 20120515
  Receipt Date: 20120508
  Transmission Date: 20120825
  Serious: Yes (Hospitalization)
  Sender: FDA-Public Use
  Company Number: US-B.I. PHARMACEUTICALS,INC./RIDGEFIELD-2012-BP-04092BP

PATIENT
  Sex: Male

DRUGS (10)
  1. SAXAGLIPTIN [Suspect]
     Indication: TYPE 2 DIABETES MELLITUS
     Dates: start: 20101027
  2. HUMALOG [Suspect]
     Indication: TYPE 2 DIABETES MELLITUS
     Dosage: 30 U
  3. LANTUS [Suspect]
     Indication: TYPE 2 DIABETES MELLITUS
     Dosage: 80 U
  4. PLACEBO [Suspect]
     Indication: TYPE 2 DIABETES MELLITUS
     Dates: start: 20101027
  5. ANGIOTENSIN CONVERTING ENZYME INHIBITOR [Concomitant]
  6. ANTI-PLATELET AGENTS [Concomitant]
  7. ANGIOTENSIN RECEPTOR BLOCKERS [Concomitant]
  8. MICARDIS [Suspect]
  9. STATINS [Concomitant]
  10. ASPIRIN [Concomitant]

REACTIONS (3)
  - SYNCOPE [None]
  - ATRIAL FIBRILLATION [None]
  - ANGINA PECTORIS [None]
